FAERS Safety Report 9650299 (Version 2)
Quarter: 2013Q4

REPORT INFORMATION
  Report Type: Spontaneous
  Country: US (occurrence: US)
  Receive Date: 20131028
  Receipt Date: 20131028
  Transmission Date: 20140711
  Serious: Yes (Other)
  Sender: FDA-Public Use
  Company Number: US-NAPPMUNDI-USA-2013-0098371

PATIENT
  Age: 50 Year
  Sex: Female
  Weight: 120 kg

DRUGS (10)
  1. OXYCONTIN (NDA 22-272) [Suspect]
     Indication: BACK PAIN
     Dosage: 280 MG, DAILY
     Route: 048
     Dates: start: 20050909
  2. OXYCONTIN (NDA 22-272) [Suspect]
     Dosage: 200 MG, DAILY
     Route: 048
  3. VICODIN [Suspect]
     Indication: DRUG ABUSE
  4. OXYCODONE HCL CR TABLETS (SIMILAR TO NDA 22-272) [Concomitant]
     Indication: PRODUCT USED FOR UNKNOWN INDICATION
     Dosage: 5 MG, UNK
  5. GRAPEFRUIT SEED EXTRACT [Concomitant]
     Indication: LYME DISEASE
  6. ANTIFUNGAL ENZYMES [Concomitant]
     Indication: LYME DISEASE
  7. LORAZEPAM [Concomitant]
     Indication: PRODUCT USED FOR UNKNOWN INDICATION
  8. AMLODIPINE BESYLATE [Concomitant]
     Indication: PRODUCT USED FOR UNKNOWN INDICATION
  9. PATADAY [Concomitant]
     Indication: PRODUCT USED FOR UNKNOWN INDICATION
  10. VALACYCLOVIR HYDROCHLORIDE [Concomitant]
     Indication: PRODUCT USED FOR UNKNOWN INDICATION

REACTIONS (4)
  - Drug abuse [Recovered/Resolved]
  - Drug level increased [Not Recovered/Not Resolved]
  - Back pain [Not Recovered/Not Resolved]
  - Pain in extremity [Not Recovered/Not Resolved]
